FAERS Safety Report 19443564 (Version 1)
Quarter: 2021Q2

REPORT INFORMATION
  Report Type: Report from Study
  Country: ZA (occurrence: ZA)
  Receive Date: 20210621
  Receipt Date: 20210621
  Transmission Date: 20210717
  Serious: Yes (Hospitalization)
  Sender: FDA-Public Use
  Company Number: ZA-BAYER-2021-160181

PATIENT
  Age: 46 Year

DRUGS (8)
  1. TEGRETOL [Concomitant]
     Active Substance: CARBAMAZEPINE
  2. BETAFERON [Suspect]
     Active Substance: INTERFERON BETA-1B
     Indication: MULTIPLE SCLEROSIS
     Dosage: 1 ML, QOD
     Dates: start: 20180803
  3. SYNALEVE [CAFFEINE;CODEINE PHOSPHATE;MEPROBAMATE;PARACETAMOL] [Concomitant]
     Active Substance: ACETAMINOPHEN\CAFFEINE\CODEINE PHOSPHATE\MEPROBAMATE
  4. BACLOFEN. [Concomitant]
     Active Substance: BACLOFEN
  5. CYMGEN [Concomitant]
     Active Substance: DULOXETINE HYDROCHLORIDE
  6. BETMIGA [Concomitant]
     Active Substance: MIRABEGRON
  7. MIRADEP [Concomitant]
     Active Substance: MIRTAZAPINE
  8. LYRICA [Concomitant]
     Active Substance: PREGABALIN

REACTIONS (8)
  - Loss of proprioception [Not Recovered/Not Resolved]
  - Gait spastic [Not Recovered/Not Resolved]
  - Sensory level abnormal [Not Recovered/Not Resolved]
  - Ataxia [Not Recovered/Not Resolved]
  - Hypertonia [Not Recovered/Not Resolved]
  - Muscle spasticity [Not Recovered/Not Resolved]
  - Muscular weakness [Not Recovered/Not Resolved]
  - Exercise tolerance decreased [Not Recovered/Not Resolved]

NARRATIVE: CASE EVENT DATE: 20210617
